FAERS Safety Report 9505805 (Version 1)
Quarter: 2013Q1

REPORT INFORMATION
  Report Type: Spontaneous
  Country: US (occurrence: None)
  Receive Date: 20130219
  Receipt Date: 20130219
  Transmission Date: 20140127
  Serious: Yes (Other)
  Sender: FDA-Public Use
  Company Number: 1207USA011475

PATIENT
  Age: 67 Year
  Sex: Male

DRUGS (4)
  1. ZOCOR [Suspect]
     Dosage: , ORAL
     Route: 048
  2. PLETAAL (CILOSTAZOL) TABLET [Suspect]
     Route: 048
  3. BLOPRESS (CANDESARTAN CILEXETIL) [Suspect]
     Dosage: , ORAL
     Route: 048
  4. AMLODIN [Suspect]

REACTIONS (2)
  - Rhabdomyolysis [None]
  - Blood creatine phosphokinase increased [None]
